FAERS Safety Report 24628784 (Version 1)
Quarter: 2024Q4

REPORT INFORMATION
  Report Type: Report from Study
  Country: ES (occurrence: ES)
  Receive Date: 20241117
  Receipt Date: 20241117
  Transmission Date: 20250115
  Serious: Yes (Death, Hospitalization)
  Sender: ABBVIE
  Company Number: ES-ABBVIE-6001131

PATIENT
  Age: 69 Year
  Sex: Male

DRUGS (2)
  1. CARBIDOPA\LEVODOPA [Suspect]
     Active Substance: CARBIDOPA\LEVODOPA
     Indication: Parkinson^s disease
     Route: 050
     Dates: start: 20210324, end: 2024
  2. CARBIDOPA\LEVODOPA [Suspect]
     Active Substance: CARBIDOPA\LEVODOPA

REACTIONS (4)
  - Death [Fatal]
  - Pyrexia [Unknown]
  - Stoma site infection [Not Recovered/Not Resolved]
  - Respiratory tract infection [Unknown]

NARRATIVE: CASE EVENT DATE: 20240101
